FAERS Safety Report 25823174 (Version 1)
Quarter: 2025Q3

REPORT INFORMATION
  Report Type: Other
  Country: CA (occurrence: CA)
  Receive Date: 20250919
  Receipt Date: 20250919
  Transmission Date: 20251021
  Serious: Yes (Death, Life-Threatening, Hospitalization, Disabling, Other)
  Sender: Atnahs Healthcare
  Company Number: CA-ATNAHS-2025-PMNV-CA000896

PATIENT

DRUGS (2)
  1. ANAPROX [Suspect]
     Active Substance: NAPROXEN SODIUM
     Indication: Rheumatoid arthritis
     Dosage: 500 MG, BID
     Route: 065
  2. ANAPROX [Suspect]
     Active Substance: NAPROXEN SODIUM
     Indication: Headache
     Dosage: 1000 MG, BID
     Route: 065

REACTIONS (2)
  - Intentional product use issue [Fatal]
  - Drug ineffective [Fatal]
